FAERS Safety Report 8353018 (Version 5)
Quarter: 2013Q2

REPORT INFORMATION
  Report Type: Report from Study
  Country: AR (occurrence: AR)
  Receive Date: 20120124
  Receipt Date: 20130425
  Transmission Date: 20140414
  Serious: Yes (Life-Threatening)
  Sender: FDA-Public Use
  Company Number: AR-TEVA-317198ISR

PATIENT
  Age: 62 Year
  Sex: Male
  Weight: 75 kg

DRUGS (4)
  1. RASAGILINE MESILATE [Suspect]
     Indication: PARKINSON^S DISEASE
     Dosage: 1 MILLIGRAM DAILY; OL- ADAGIO FU, 1MG/DAY
     Route: 048
     Dates: start: 20100119
  2. RASAGILINE MESILATE [Suspect]
     Dosage: 1 MILLIGRAM DAILY; ACTIVE PHASE: 1MG VS 2MG
     Route: 048
     Dates: start: 20070424, end: 20071227
  3. RASAGILINE MESILATE [Suspect]
     Dosage: 1 MILLIGRAM DAILY; DB PHASE: 1MG VS 2MG VS PLACEBO
     Route: 048
     Dates: start: 20060817, end: 20070426
  4. LEVODOPA-CARBIDOPA [Suspect]
     Indication: PARKINSON^S DISEASE
     Dosage: 100/25 BID
     Route: 048
     Dates: start: 20110419

REACTIONS (1)
  - Pharyngeal cancer [Not Recovered/Not Resolved]
